FAERS Safety Report 5744349-9 (Version None)
Quarter: 2008Q2

REPORT INFORMATION
  Report Type: 
  Country: None (occurrence: None)
  Receive Date: 20080520
  Receipt Date: 20080508
  Transmission Date: 20081010
  Serious: Yes (Other)
  Sender: FDA-Public Use
  Company Number: DE-ROCHE-564259

PATIENT
  Sex: Female

DRUGS (2)
  1. XELODA [Suspect]
     Route: 065
     Dates: start: 20070901, end: 20071210
  2. XELODA [Suspect]
     Dosage: FIFTH CYCLE, DOSE REDUCED.
     Route: 065
     Dates: start: 20080104

REACTIONS (4)
  - ARTHRALGIA [None]
  - METASTASES TO SKIN [None]
  - PALMAR-PLANTAR ERYTHRODYSAESTHESIA SYNDROME [None]
  - PLEURAL EFFUSION [None]
